FAERS Safety Report 20802939 (Version 1)
Quarter: 2022Q2

REPORT INFORMATION
  Report Type: Spontaneous
  Country: US (occurrence: US)
  Receive Date: 20220509
  Receipt Date: 20220509
  Transmission Date: 20220721
  Serious: No
  Sender: FDA-Public Use
  Company Number: US-PFIZER INC-202101233078

PATIENT

DRUGS (1)
  1. TRIAZOLAM [Suspect]
     Active Substance: TRIAZOLAM
     Dosage: 2 DF, 1X/DAY(TAKE 2 OF THOSE A NIGHT)

REACTIONS (2)
  - Drug ineffective [Unknown]
  - Product quality issue [Unknown]
